FAERS Safety Report 11179376 (Version 1)
Quarter: 2015Q2

REPORT INFORMATION
  Report Type: Spontaneous
  Country: US (occurrence: US)
  Receive Date: 20150611
  Receipt Date: 20150611
  Transmission Date: 20150821
  Serious: Yes (Other)
  Sender: FDA-Public Use
  Company Number: US-SUN PHARMACEUTICAL INDUSTRIES LTD-2015US-98575

PATIENT
  Age: 78 Year
  Sex: Male
  Weight: 81.63 kg

DRUGS (1)
  1. TRAMADOL [Suspect]
     Active Substance: TRAMADOL
     Indication: PAIN
     Dosage: 1-2 TABLETS AS NECESSARY
     Route: 065
     Dates: start: 201501

REACTIONS (3)
  - Dizziness [Recovering/Resolving]
  - Dysstasia [Recovering/Resolving]
  - Therapeutic agent urine positive [Recovering/Resolving]

NARRATIVE: CASE EVENT DATE: 20150506
